FAERS Safety Report 8089223-0 (Version None)
Quarter: 2012Q1

REPORT INFORMATION
  Report Type: 
  Country: None (occurrence: None)
  Receive Date: 20120128
  Receipt Date: 20110708
  Transmission Date: 20120608
  Serious: Yes (Hospitalization)
  Sender: FDA-Public Use
  Company Number: US-ABBOTT-11P-163-0837662-00

PATIENT
  Sex: Female
  Weight: 69.916 kg

DRUGS (4)
  1. PREDNISONE TAB [Concomitant]
     Indication: CROHN'S DISEASE
     Dosage: TAPER
  2. NIFEDIPINE [Concomitant]
     Indication: HYPERTENSION
  3. MICARDIS [Concomitant]
     Indication: HYPERTENSION
     Dosage: 80/25MG DAILY
  4. HUMIRA [Suspect]
     Indication: CROHN'S DISEASE
     Route: 058
     Dates: start: 20110610

REACTIONS (3)
  - CHEST PAIN [None]
  - INJECTION SITE PAIN [None]
  - MYALGIA [None]
